FAERS Safety Report 6851062-3 (Version None)
Quarter: 2010Q3

REPORT INFORMATION
  Report Type: 
  Country: None (occurrence: None)
  Receive Date: 20100716
  Receipt Date: 20071030
  Transmission Date: 20110219
  Serious: No
  Sender: FDA-Public Use
  Company Number: US-PFIZER INC-2007092044

PATIENT
  Sex: Male
  Weight: 101.2 kg

DRUGS (8)
  1. CHANTIX [Suspect]
     Indication: SMOKING CESSATION THERAPY
     Dates: start: 20071023
  2. METOPROLOL [Concomitant]
  3. PLAVIX [Concomitant]
  4. ACTOS [Concomitant]
  5. LIPITOR [Concomitant]
  6. SITAGLIPTIN [Concomitant]
  7. SIL-NORBORAL [Concomitant]
  8. TRICOR [Concomitant]

REACTIONS (2)
  - PRURITUS [None]
  - RASH [None]
